FAERS Safety Report 8762052 (Version 1)
Quarter: 2012Q4

REPORT INFORMATION
  Report Type: 
  Country: DE (occurrence: DE)
  Receive Date: 20120829
  Receipt Date: 20120829
  Transmission Date: 20130627
  Serious: Yes (Other)
  Sender: FDA-Public Use
  Company Number: DE-PFIZER INC-2012209642

PATIENT
  Age: 47 Year
  Sex: Female

DRUGS (4)
  1. LYRICA [Suspect]
     Indication: TRIGEMINAL NEURALGIA
     Dosage: 300 mg, UNK
     Route: 048
  2. ZOLPIDEM TARTRATE [Concomitant]
     Dosage: UNK
     Route: 048
  3. METAMIZOL NATRIUM [Concomitant]
     Dosage: UNK
     Route: 048
  4. TETRAZEPAM [Concomitant]
     Dosage: UNK
     Route: 048

REACTIONS (6)
  - Drug dependence [Unknown]
  - Withdrawal syndrome [Unknown]
  - Anxiety [Unknown]
  - Nervousness [Unknown]
  - Oropharyngeal pain [Unknown]
  - Tachycardia [Unknown]
